FAERS Safety Report 18155876 (Version 1)
Quarter: 2020Q3

REPORT INFORMATION
  Report Type: Spontaneous
  Country: FR (occurrence: FR)
  Receive Date: 20200817
  Receipt Date: 20200817
  Transmission Date: 20201103
  Serious: Yes (Other)
  Sender: FDA-Public Use
  Company Number: FR-CHEPLA-C20202334

PATIENT
  Age: 65 Year

DRUGS (5)
  1. IMMUNOGLOBULIN CYTOMEGALOVIRUS [Suspect]
     Active Substance: HUMAN CYTOMEGALOVIRUS IMMUNE GLOBULIN
     Indication: CYTOMEGALOVIRUS INFECTION
     Dosage: 1 DF
     Dates: start: 20200526, end: 20200526
  2. IMMUNOGLOBULIN CYTOMEGALOVIRUS [Suspect]
     Active Substance: HUMAN CYTOMEGALOVIRUS IMMUNE GLOBULIN
     Indication: CYTOMEGALOVIRUS INFECTION
     Dosage: 1 DF
     Dates: start: 20200626, end: 20200626
  3. VALGANCICLOVIR. [Suspect]
     Active Substance: VALGANCICLOVIR
     Indication: CYTOMEGALOVIRUS INFECTION
     Dosage: 900 MG ONCE IN TWELVE HOURS
     Dates: start: 20200526, end: 20200703
  4. FOSCARNET SODIUM. [Suspect]
     Active Substance: FOSCARNET SODIUM
     Indication: CYTOMEGALOVIRUS INFECTION
     Dosage: 8500 MG, EVERY 12 HOURS
     Dates: start: 20200717
  5. GANCICLOVIR. [Suspect]
     Active Substance: GANCICLOVIR
     Indication: CYTOMEGALOVIRUS INFECTION
     Dosage: 400 MG, ONCE IN TWELVE HOURS
     Dates: start: 20200703, end: 20200717

REACTIONS (3)
  - Pulmonary oedema [Unknown]
  - Drug ineffective [Unknown]
  - Acute respiratory failure [Unknown]
